FAERS Safety Report 4479663-0 (Version None)
Quarter: 2004Q4

REPORT INFORMATION
  Report Type: 
  Country: None (occurrence: None)
  Receive Date: 20041015
  Receipt Date: 20041004
  Transmission Date: 20050328
  Serious: Yes (Hospitalization)
  Sender: FDA-Public Use
  Company Number: 205625

PATIENT
  Age: 35 Year
  Sex: Female

DRUGS (1)
  1. AVONEX [Suspect]
     Indication: MULTIPLE SCLEROSIS
     Dosage: 30 MCG QW IM
     Route: 030
     Dates: start: 20040630

REACTIONS (5)
  - ABDOMINAL PAIN [None]
  - ANURIA [None]
  - FALL [None]
  - HEMIPARESIS [None]
  - HYPOAESTHESIA [None]
